FAERS Safety Report 6930181-7 (Version None)
Quarter: 2010Q3

REPORT INFORMATION
  Report Type: 
  Country: None (occurrence: None)
  Receive Date: 20100818
  Receipt Date: 20100809
  Transmission Date: 20110219
  Serious: No
  Sender: FDA-Public Use
  Company Number: US-PFIZER INC-2010100808

PATIENT
  Sex: Male
  Weight: 77 kg

DRUGS (3)
  1. XANAX [Suspect]
     Indication: ANXIETY
     Dosage: 1 MG, UNK
     Dates: start: 20090201, end: 20100705
  2. XANAX [Suspect]
     Dosage: 0.25 MG, UNK
     Dates: start: 20100805
  3. METOPROLOL [Concomitant]
     Indication: HYPERTENSION
     Dosage: 100 MG, DAILY

REACTIONS (1)
  - DRUG INEFFECTIVE [None]
